FAERS Safety Report 9030275 (Version 2)
Quarter: 2013Q1

REPORT INFORMATION
  Report Type: Report from Study
  Country: JP (occurrence: JP)
  Receive Date: 20130122
  Receipt Date: 20130228
  Transmission Date: 20140127
  Serious: Yes (Death, Life-Threatening, Other)
  Sender: FDA-Public Use
  Company Number: JP-ACTELION-A-CH2013-78090

PATIENT
  Age: 3 Month
  Sex: Male
  Weight: 7.6 kg

DRUGS (11)
  1. TRACLEER [Suspect]
     Indication: PULMONARY HYPERTENSION
     Dosage: 4 MG, TID
     Route: 048
     Dates: start: 20070414, end: 20070501
  2. TRACLEER [Suspect]
     Dosage: 1.7 MG, TID
     Route: 048
     Dates: start: 20070214, end: 20070318
  3. TRACLEER [Suspect]
     Dosage: 2.5 MG, TID
     Route: 048
     Dates: start: 20070319, end: 20070325
  4. TRACLEER [Suspect]
     Dosage: 3.3 MG, TID
     Route: 048
     Dates: start: 20070326, end: 20070413
  5. TRACLEER [Suspect]
     Dosage: 5 MG, TID
     Route: 048
     Dates: start: 20070502, end: 20070621
  6. TRACLEER [Suspect]
     Dosage: 5.7 MG, TID
     Route: 048
     Dates: start: 20070622, end: 20070906
  7. TRACLEER [Suspect]
     Dosage: 6.7 MG, TID
     Route: 048
     Dates: start: 20070907, end: 20080427
  8. BERAPROST SODIUM [Concomitant]
  9. TORASEMIDE [Concomitant]
  10. SPIRONOLACTONE [Concomitant]
  11. NITRIC OXIDE [Concomitant]

REACTIONS (7)
  - Gastrointestinal haemorrhage [Fatal]
  - Infection [Not Recovered/Not Resolved]
  - Hepatic congestion [Not Recovered/Not Resolved]
  - Hepatic function abnormal [Not Recovered/Not Resolved]
  - Aspartate aminotransferase increased [Not Recovered/Not Resolved]
  - Alanine aminotransferase increased [Not Recovered/Not Resolved]
  - White blood cell count increased [Not Recovered/Not Resolved]
